FAERS Safety Report 8987388 (Version 1)
Quarter: 2012Q4

REPORT INFORMATION
  Report Type: Report from Study
  Country: CA (occurrence: CA)
  Receive Date: 20121226
  Receipt Date: 20121226
  Transmission Date: 20130627
  Serious: Yes (Hospitalization, Other)
  Sender: FDA-Public Use
  Company Number: CA-ROCHE-1171761

PATIENT
  Age: 62 Year
  Sex: Female
  Weight: 61.2 kg

DRUGS (8)
  1. OMALIZUMAB [Suspect]
     Indication: ASTHMA
     Dosage: 300 mg, 1/Month
     Route: 058
     Dates: start: 20050727
  2. OMALIZUMAB [Suspect]
     Dosage: UNK unk, Unknown
     Route: 058
     Dates: start: 20101130
  3. BISOPROLOL FUMARATE [Suspect]
     Indication: HYPERTENSION
     Route: 065
  4. SYMBICORT [Concomitant]
     Indication: PRODUCT USED FOR UNKNOWN INDICATION
  5. SINGULAIR [Concomitant]
     Indication: PRODUCT USED FOR UNKNOWN INDICATION
  6. HYDROCHLOROTHIAZIDE [Concomitant]
     Indication: PRODUCT USED FOR UNKNOWN INDICATION
  7. FOSAMAX [Concomitant]
     Indication: PRODUCT USED FOR UNKNOWN INDICATION
  8. LEVAQUIN [Concomitant]
     Indication: PRODUCT USED FOR UNKNOWN INDICATION

REACTIONS (24)
  - Lower respiratory tract infection [Recovering/Resolving]
  - Viral infection [Unknown]
  - Laryngitis [Unknown]
  - Rhinorrhoea [Unknown]
  - Asthma [Unknown]
  - Hypersensitivity [Unknown]
  - Hypertension [Unknown]
  - Lung infection [Unknown]
  - Tongue discolouration [Unknown]
  - Facial bones fracture [Unknown]
  - Nasal discharge discolouration [Unknown]
  - Urticaria [Unknown]
  - Cerebrovascular accident [Unknown]
  - Pneumonia [Unknown]
  - Hemiparesis [Recovered/Resolved]
  - Respiratory disorder [Unknown]
  - Muscle spasms [Unknown]
  - Pain in extremity [Not Recovered/Not Resolved]
  - Influenza [Unknown]
  - Sinusitis [Unknown]
  - Nasopharyngitis [Unknown]
  - Crepitations [Unknown]
  - Dysphonia [Unknown]
  - Asthma [Unknown]
